FAERS Safety Report 14578594 (Version 2)
Quarter: 2019Q1

REPORT INFORMATION
  Report Type: Spontaneous
  Country: DK (occurrence: DK)
  Receive Date: 20180227
  Receipt Date: 20190214
  Transmission Date: 20190417
  Serious: Yes (Death)
  Sender: FDA-Public Use
  Company Number: PHHY2017DK201295

PATIENT
  Age: 87 Year
  Sex: Male

DRUGS (1)
  1. BUPRENORPHINE. [Suspect]
     Active Substance: BUPRENORPHINE
     Indication: PAIN
     Dosage: 5 UG, QH
     Route: 062

REACTIONS (3)
  - Discoloured vomit [Fatal]
  - Abdominal distension [Fatal]
  - Faecaloma [Fatal]
